FAERS Safety Report 24565476 (Version 1)
Quarter: 2024Q4

REPORT INFORMATION
  Report Type: Report from Study
  Country: CN (occurrence: CN)
  Receive Date: 20241030
  Receipt Date: 20241030
  Transmission Date: 20250114
  Serious: Yes (Hospitalization, Other)
  Sender: RANBAXY
  Company Number: CN-SUN PHARMACEUTICAL INDUSTRIES LTD-2024R1-476279

PATIENT
  Age: 35 Year
  Sex: Female

DRUGS (2)
  1. CLINDAMYCIN [Suspect]
     Active Substance: CLINDAMYCIN
     Indication: Listeriosis
     Dosage: 0.3 GRAM, Q12
     Route: 042
  2. TINIDAZOLE [Suspect]
     Active Substance: TINIDAZOLE
     Indication: Listeriosis
     Dosage: 0.4 GRAM, Q12H
     Route: 065

REACTIONS (3)
  - Foetal death [Unknown]
  - Exposure during pregnancy [Unknown]
  - Amniotic cavity infection [Unknown]
